FAERS Safety Report 10270468 (Version 2)
Quarter: 2014Q3

REPORT INFORMATION
  Report Type: Report from Study
  Country: US (occurrence: US)
  Receive Date: 20140701
  Receipt Date: 20140729
  Transmission Date: 20150326
  Serious: Yes (Life-Threatening, Hospitalization)
  Sender: FDA-Public Use
  Company Number: US-US-EMD SERONO, INC.-7301563

PATIENT
  Age: 46 Year
  Sex: Male
  Weight: 84 kg

DRUGS (2)
  1. COUMADIN [Suspect]
     Active Substance: WARFARIN SODIUM
     Indication: HYPERCOAGULATION
  2. REBIF [Suspect]
     Active Substance: INTERFERON BETA-1A
     Indication: MULTIPLE SCLEROSIS
     Route: 058
     Dates: start: 20040421

REACTIONS (7)
  - Haemorrhage intracranial [Recovered/Resolved]
  - Cerebrovascular accident [Recovered/Resolved]
  - Loss of consciousness [Unknown]
  - Fall [Unknown]
  - Injection site extravasation [Not Recovered/Not Resolved]
  - Central nervous system infection [Recovered/Resolved]
  - Convulsion [Unknown]

NARRATIVE: CASE EVENT DATE: 201111
